FAERS Safety Report 24253111 (Version 1)
Quarter: 2024Q3

REPORT INFORMATION
  Report Type: Spontaneous
  Country: US (occurrence: None)
  Receive Date: 20240823
  Receipt Date: 20240823
  Transmission Date: 20241017
  Serious: Yes (Hospitalization)
  Sender: Public
  Company Number: None

PATIENT
  Sex: Male

DRUGS (1)
  1. ILARIS [Suspect]
     Active Substance: CANAKINUMAB
     Indication: Still^s disease
     Dosage: FREQ: INJECT 300MG UNDER THE SKIN (SUBCUTANEOUS INJECTION) EVERY 30 DAYS
     Route: 058
     Dates: start: 20240123

REACTIONS (1)
  - Therapy interrupted [None]
